FAERS Safety Report 6430802-1 (Version None)
Quarter: 2009Q4

REPORT INFORMATION
  Report Type: 
  Country: None (occurrence: None)
  Receive Date: 20091105
  Receipt Date: 20091105
  Transmission Date: 20100525
  Serious: No
  Sender: FDA-Public Use
  Company Number: None

PATIENT
  Sex: Female
  Weight: 71.6683 kg

DRUGS (6)
  1. REMICADE [Suspect]
     Indication: CROHN'S DISEASE
     Dosage: 5MG/KG OR 400MG Q8WK IV DRIP; GREATER THAN 5 YEARS
     Route: 041
  2. NEXIUM [Concomitant]
  3. PENTASA [Concomitant]
  4. ALLEGRA D 24 HOUR [Concomitant]
  5. NASACORT [Concomitant]
  6. ALBUTEROL [Concomitant]

REACTIONS (1)
  - PREGNANCY [None]
